FAERS Safety Report 25752455 (Version 2)
Quarter: 2025Q3

REPORT INFORMATION
  Report Type: Report from Study
  Country: EU (occurrence: EU)
  Receive Date: 20250902
  Receipt Date: 20250915
  Transmission Date: 20251020
  Serious: Yes (Life-Threatening, Hospitalization)
  Sender: MYLAN
  Company Number: None

PATIENT
  Age: 57 Year
  Sex: Male

DRUGS (32)
  1. CLOZAPINE [Interacting]
     Active Substance: CLOZAPINE
     Indication: Product used for unknown indication
     Dosage: 2 DOSAGE FORM, QD (2 TABLETS/24 HOURS)
     Dates: start: 20250304, end: 20250808
  2. CLOZAPINE [Interacting]
     Active Substance: CLOZAPINE
     Dosage: 2 DOSAGE FORM, QD (2 TABLETS/24 HOURS)
     Route: 048
     Dates: start: 20250304, end: 20250808
  3. CLOZAPINE [Interacting]
     Active Substance: CLOZAPINE
     Dosage: 2 DOSAGE FORM, QD (2 TABLETS/24 HOURS)
     Route: 048
     Dates: start: 20250304, end: 20250808
  4. CLOZAPINE [Interacting]
     Active Substance: CLOZAPINE
     Dosage: 2 DOSAGE FORM, QD (2 TABLETS/24 HOURS)
     Dates: start: 20250304, end: 20250808
  5. CLOZAPINE [Interacting]
     Active Substance: CLOZAPINE
     Indication: Product used for unknown indication
     Dosage: 1 DOSAGE FORM, QD (1 TABLET/24 HOURS)
     Dates: start: 20250304, end: 20250808
  6. CLOZAPINE [Interacting]
     Active Substance: CLOZAPINE
     Dosage: 1 DOSAGE FORM, QD (1 TABLET/24 HOURS)
     Route: 048
     Dates: start: 20250304, end: 20250808
  7. CLOZAPINE [Interacting]
     Active Substance: CLOZAPINE
     Dosage: 1 DOSAGE FORM, QD (1 TABLET/24 HOURS)
     Route: 048
     Dates: start: 20250304, end: 20250808
  8. CLOZAPINE [Interacting]
     Active Substance: CLOZAPINE
     Dosage: 1 DOSAGE FORM, QD (1 TABLET/24 HOURS)
     Dates: start: 20250304, end: 20250808
  9. ARIPIPRAZOLE [Interacting]
     Active Substance: ARIPIPRAZOLE
     Indication: Product used for unknown indication
     Dates: start: 20250304, end: 20250808
  10. ARIPIPRAZOLE [Interacting]
     Active Substance: ARIPIPRAZOLE
     Route: 030
     Dates: start: 20250304, end: 20250808
  11. ARIPIPRAZOLE [Interacting]
     Active Substance: ARIPIPRAZOLE
     Route: 030
     Dates: start: 20250304, end: 20250808
  12. ARIPIPRAZOLE [Interacting]
     Active Substance: ARIPIPRAZOLE
     Dates: start: 20250304, end: 20250808
  13. CLONAZEPAM [Interacting]
     Active Substance: CLONAZEPAM
     Indication: Product used for unknown indication
     Dosage: UNK UNK, Q8H (1 INTRAMUSCULAR INJECTION/8 HOURS)
     Dates: start: 20250304, end: 20250808
  14. CLONAZEPAM [Interacting]
     Active Substance: CLONAZEPAM
     Dosage: UNK UNK, Q8H (1 INTRAMUSCULAR INJECTION/8 HOURS)
     Route: 030
     Dates: start: 20250304, end: 20250808
  15. CLONAZEPAM [Interacting]
     Active Substance: CLONAZEPAM
     Dosage: UNK UNK, Q8H (1 INTRAMUSCULAR INJECTION/8 HOURS)
     Route: 030
     Dates: start: 20250304, end: 20250808
  16. CLONAZEPAM [Interacting]
     Active Substance: CLONAZEPAM
     Dosage: UNK UNK, Q8H (1 INTRAMUSCULAR INJECTION/8 HOURS)
     Dates: start: 20250304, end: 20250808
  17. BREXPIPRAZOLE [Interacting]
     Active Substance: BREXPIPRAZOLE
     Indication: Product used for unknown indication
     Dosage: 1 DOSAGE FORM, QD (1 TABLET/24 HOURS)
     Dates: start: 20250304, end: 20250808
  18. BREXPIPRAZOLE [Interacting]
     Active Substance: BREXPIPRAZOLE
     Dosage: 1 DOSAGE FORM, QD (1 TABLET/24 HOURS)
     Route: 048
     Dates: start: 20250304, end: 20250808
  19. BREXPIPRAZOLE [Interacting]
     Active Substance: BREXPIPRAZOLE
     Dosage: 1 DOSAGE FORM, QD (1 TABLET/24 HOURS)
     Route: 048
     Dates: start: 20250304, end: 20250808
  20. BREXPIPRAZOLE [Interacting]
     Active Substance: BREXPIPRAZOLE
     Dosage: 1 DOSAGE FORM, QD (1 TABLET/24 HOURS)
     Dates: start: 20250304, end: 20250808
  21. ZUCLOPENTHIXOL ACETATE [Interacting]
     Active Substance: ZUCLOPENTHIXOL ACETATE
     Indication: Product used for unknown indication
     Dosage: 1 DOSAGE FORM, QD (1 TABLET/24 HOURS)
     Dates: start: 20250302, end: 20250304
  22. ZUCLOPENTHIXOL ACETATE [Interacting]
     Active Substance: ZUCLOPENTHIXOL ACETATE
     Dosage: 1 DOSAGE FORM, QD (1 TABLET/24 HOURS)
     Route: 048
     Dates: start: 20250302, end: 20250304
  23. ZUCLOPENTHIXOL ACETATE [Interacting]
     Active Substance: ZUCLOPENTHIXOL ACETATE
     Dosage: 1 DOSAGE FORM, QD (1 TABLET/24 HOURS)
     Route: 048
     Dates: start: 20250302, end: 20250304
  24. ZUCLOPENTHIXOL ACETATE [Interacting]
     Active Substance: ZUCLOPENTHIXOL ACETATE
     Dosage: 1 DOSAGE FORM, QD (1 TABLET/24 HOURS)
     Dates: start: 20250302, end: 20250304
  25. LOSARTAN [Concomitant]
     Active Substance: LOSARTAN
     Dosage: 1 DOSAGE FORM, Q3D (1 TABLET/72 HOURS)
     Dates: start: 20240112, end: 20250330
  26. LOSARTAN [Concomitant]
     Active Substance: LOSARTAN
     Dosage: 1 DOSAGE FORM, Q3D (1 TABLET/72 HOURS)
     Route: 048
     Dates: start: 20240112, end: 20250330
  27. LOSARTAN [Concomitant]
     Active Substance: LOSARTAN
     Dosage: 1 DOSAGE FORM, Q3D (1 TABLET/72 HOURS)
     Route: 048
     Dates: start: 20240112, end: 20250330
  28. LOSARTAN [Concomitant]
     Active Substance: LOSARTAN
     Dosage: 1 DOSAGE FORM, Q3D (1 TABLET/72 HOURS)
     Dates: start: 20240112, end: 20250330
  29. FOLIC ACID [Concomitant]
     Active Substance: FOLIC ACID
     Dosage: 3 DOSAGE FORM, BID (3 TABLETS/12 HOURS)
     Dates: start: 20250304, end: 20250808
  30. FOLIC ACID [Concomitant]
     Active Substance: FOLIC ACID
     Dosage: 3 DOSAGE FORM, BID (3 TABLETS/12 HOURS)
     Route: 048
     Dates: start: 20250304, end: 20250808
  31. FOLIC ACID [Concomitant]
     Active Substance: FOLIC ACID
     Dosage: 3 DOSAGE FORM, BID (3 TABLETS/12 HOURS)
     Route: 048
     Dates: start: 20250304, end: 20250808
  32. FOLIC ACID [Concomitant]
     Active Substance: FOLIC ACID
     Dosage: 3 DOSAGE FORM, BID (3 TABLETS/12 HOURS)
     Dates: start: 20250304, end: 20250808

REACTIONS (2)
  - Depressed level of consciousness [Recovered/Resolved]
  - Drug interaction [Unknown]

NARRATIVE: CASE EVENT DATE: 20250304
